FAERS Safety Report 10089181 (Version 1)
Quarter: 2014Q2

REPORT INFORMATION
  Report Type: Spontaneous
  Country: US (occurrence: None)
  Receive Date: 20140418
  Receipt Date: 20140418
  Transmission Date: 20141212
  Serious: Yes (Hospitalization, Disabling, Other)
  Sender: FDA-Public Use
  Company Number: None

PATIENT
  Age: 40 Year
  Sex: Male
  Weight: 115.21 kg

DRUGS (1)
  1. CRESTOR 20 MG ASTRA ZENAKA [Suspect]
     Indication: BLOOD CHOLESTEROL INCREASED
     Dosage: 30 PILLS AT BEDTIME TAKEN BY MOUTH
     Route: 048
     Dates: start: 20140314, end: 20140412

REACTIONS (4)
  - Back pain [None]
  - Muscle spasms [None]
  - Pain [None]
  - Hypoaesthesia [None]
